FAERS Safety Report 4819374-2 (Version None)
Quarter: 2005Q4

REPORT INFORMATION
  Report Type: 
  Country: None (occurrence: None)
  Receive Date: 20051031
  Receipt Date: 20050730
  Transmission Date: 20060501
  Serious: No
  Sender: FDA-Public Use
  Company Number: 2005PV000702

PATIENT
  Age: 62 Year
  Sex: Female
  Weight: 159.2126 kg

DRUGS (14)
  1. SYMLIN [Suspect]
     Indication: DIABETES MELLITUS NON-INSULIN-DEPENDENT
     Dosage: 60 MCG;TID;SC
     Route: 058
     Dates: start: 20050727
  2. NOVOLOG [Concomitant]
  3. NOVOLIN [Concomitant]
  4. PRILOSEC [Concomitant]
  5. GLYBURIDE [Concomitant]
  6. HYZAAR [Concomitant]
  7. DIOVAN [Concomitant]
  8. ALLEGRA [Concomitant]
  9. ATROPINE/DIPHENOXYLATE [Concomitant]
  10. DETROL [Concomitant]
  11. ESTRONATURAL [Concomitant]
  12. MULTIVIT [Concomitant]
  13. CALCIUM /D [Concomitant]
  14. GLUCOSAMINE / MSM [Concomitant]

REACTIONS (2)
  - INJECTION SITE BRUISING [None]
  - INJECTION SITE PAIN [None]
